FAERS Safety Report 9272137 (Version 1)
Quarter: 2013Q2

REPORT INFORMATION
  Report Type: Spontaneous
  Country: US (occurrence: US)
  Receive Date: 20130506
  Receipt Date: 20130506
  Transmission Date: 20140414
  Serious: Yes (Other)
  Sender: FDA-Public Use
  Company Number: PHHY2013US043389

PATIENT
  Sex: Female

DRUGS (1)
  1. ASCRIPTIN BUFFERED CAPS UNKNOWN FORMULA [Suspect]

REACTIONS (2)
  - Cerebrovascular accident [Unknown]
  - Memory impairment [Unknown]
